FAERS Safety Report 18123679 (Version 1)
Quarter: 2020Q3

REPORT INFORMATION
  Report Type: Spontaneous
  Country: US (occurrence: US)
  Receive Date: 20200807
  Receipt Date: 20200807
  Transmission Date: 20201103
  Serious: No
  Sender: FDA-Public Use
  Company Number: US-AEGERION PHARMACEUTICAL, INC-AEGR004794

PATIENT
  Sex: Female
  Weight: 48.73 kg

DRUGS (3)
  1. WATER FOR INJECTION [Concomitant]
     Active Substance: WATER
  2. MYALEPT [Suspect]
     Active Substance: METRELEPTIN
     Indication: LIPODYSTROPHY ACQUIRED
     Dosage: 3.75 MG, BID
     Route: 058
     Dates: start: 201703
  3. MYALEPT [Suspect]
     Active Substance: METRELEPTIN
     Indication: CONGENITAL GENERALISED LIPODYSTROPHY

REACTIONS (3)
  - Diet noncompliance [Unknown]
  - Glycosylated haemoglobin increased [Unknown]
  - Blood triglycerides increased [Recovered/Resolved]
